FAERS Safety Report 7072591-6 (Version None)
Quarter: 2010Q4

REPORT INFORMATION
  Report Type: 
  Country: None (occurrence: None)
  Receive Date: 20101029
  Receipt Date: 20100217
  Transmission Date: 20110411
  Serious: No
  Sender: FDA-Public Use
  Company Number: A0844932A

PATIENT
  Age: 69 Year
  Sex: Female

DRUGS (12)
  1. ADVAIR DISKUS 100/50 [Suspect]
     Indication: ASTHMA
     Route: 055
     Dates: start: 20000101
  2. DIOVAN [Concomitant]
  3. DOXAZOSIN MESYLATE [Concomitant]
  4. ISOSORBIDE DINITRATE [Concomitant]
  5. TRAZODONE [Concomitant]
  6. SERTRALINE HYDROCHLORIDE [Concomitant]
  7. TOPROL-XL [Concomitant]
  8. OSCAL-D [Concomitant]
  9. CARTIA XT [Concomitant]
  10. FOSAMAX [Concomitant]
  11. ASPIRIN [Concomitant]
  12. VITAMIN B-12 [Concomitant]
     Route: 042

REACTIONS (4)
  - COUGH [None]
  - DRUG INEFFECTIVE [None]
  - PRURITUS [None]
  - RASH [None]
